FAERS Safety Report 15889808 (Version 1)
Quarter: 2019Q1

REPORT INFORMATION
  Report Type: Report from Study
  Country: CA (occurrence: CA)
  Receive Date: 20190130
  Receipt Date: 20190130
  Transmission Date: 20190417
  Serious: Yes (Life-Threatening, Hospitalization)
  Sender: FDA-Public Use
  Company Number: CA-JNJFOC-20190112585

PATIENT
  Age: 58 Year
  Sex: Female

DRUGS (1)
  1. STELARA [Suspect]
     Active Substance: USTEKINUMAB
     Indication: CROHN^S DISEASE
     Route: 058
     Dates: start: 20170524

REACTIONS (11)
  - Pelvic fracture [Unknown]
  - Cerebral haemorrhage [Unknown]
  - Pneumothorax [Unknown]
  - Product use issue [Unknown]
  - Road traffic accident [Unknown]
  - Concussion [Unknown]
  - Loss of consciousness [Recovered/Resolved]
  - Abdominal pain [Not Recovered/Not Resolved]
  - Off label use [Unknown]
  - Spinal fracture [Unknown]
  - Contusion [Unknown]

NARRATIVE: CASE EVENT DATE: 20170524
